FAERS Safety Report 23747551 (Version 1)
Quarter: 2024Q2

REPORT INFORMATION
  Report Type: Spontaneous
  Country: US (occurrence: US)
  Receive Date: 20240416
  Receipt Date: 20240416
  Transmission Date: 20240716
  Serious: No
  Sender: FDA-Public Use
  Company Number: US-002147023-NVSC2024US080181

PATIENT

DRUGS (3)
  1. COSENTYX [Suspect]
     Active Substance: SECUKINUMAB
     Indication: Pain
     Dosage: 150 MG (1 SHOT)
     Route: 065
  2. COSENTYX [Suspect]
     Active Substance: SECUKINUMAB
     Dosage: 300 MG (2 SHOTS)
     Route: 065
  3. OTEZLA [Suspect]
     Active Substance: APREMILAST
     Indication: Pain
     Route: 065

REACTIONS (1)
  - Therapeutic product effect decreased [Unknown]
